FAERS Safety Report 7601448-4 (Version None)
Quarter: 2011Q2

REPORT INFORMATION
  Report Type: 
  Country: None (occurrence: None)
  Receive Date: 20110629
  Receipt Date: 20110615
  Transmission Date: 20111010
  Serious: Yes (Other)
  Sender: FDA-Public Use
  Company Number: 2011MA007232

PATIENT
  Age: 65 Year
  Sex: Female

DRUGS (2)
  1. AZATHIOPRINE [Suspect]
     Indication: PRODUCT USED FOR UNKNOWN INDICATION
     Dosage: 75 MG;
  2. HYDROCORTISONE 1% OINTMENT [Suspect]
     Indication: EYE INFLAMMATION
     Dosage: 30 MG, QD,

REACTIONS (4)
  - VISION BLURRED [None]
  - CHORIORETINOPATHY [None]
  - RETINAL DETACHMENT [None]
  - ANTERIOR CHAMBER INFLAMMATION [None]
